FAERS Safety Report 15551224 (Version 1)
Quarter: 2018Q4

REPORT INFORMATION
  Report Type: Spontaneous
  Country: US (occurrence: US)
  Receive Date: 20181025
  Receipt Date: 20181025
  Transmission Date: 20190205
  Serious: Yes (Death)
  Sender: FDA-Public Use
  Company Number: None

PATIENT
  Age: 78 Year
  Sex: Female

DRUGS (17)
  1. METOPROLOL TARTRATE. [Concomitant]
     Active Substance: METOPROLOL TARTRATE
  2. VALSARTAN. [Concomitant]
     Active Substance: VALSARTAN
  3. SIMVASTATIN. [Concomitant]
     Active Substance: SIMVASTATIN
  4. TIZANIDINE. [Concomitant]
     Active Substance: TIZANIDINE
  5. LEVOTHYROXIN [Concomitant]
     Active Substance: LEVOTHYROXINE
  6. GABAPENTIN. [Concomitant]
     Active Substance: GABAPENTIN
  7. ELIQUIS [Concomitant]
     Active Substance: APIXABAN
  8. POLYETH GLYC [Concomitant]
     Active Substance: POLYETHYLENE GLYCOLS
  9. AZITHROMYCIN ANHYDROUS. [Concomitant]
     Active Substance: AZITHROMYCIN ANHYDROUS
  10. FLUCONAZOLE. [Concomitant]
     Active Substance: FLUCONAZOLE
  11. CLINDAMYCIN. [Concomitant]
     Active Substance: CLINDAMYCIN
  12. ESBRIET [Suspect]
     Active Substance: PIRFENIDONE
     Indication: PRODUCT USED FOR UNKNOWN INDICATION
     Route: 048
     Dates: start: 20180127
  13. FUROSEMIDE. [Concomitant]
     Active Substance: FUROSEMIDE
  14. CALCIUM 600 [Concomitant]
  15. VITAMIN D [Concomitant]
     Active Substance: CHOLECALCIFEROL
  16. FENOFIBRATE. [Concomitant]
     Active Substance: FENOFIBRATE
  17. KETOCONAZOLE. [Concomitant]
     Active Substance: KETOCONAZOLE

REACTIONS (1)
  - Death [None]

NARRATIVE: CASE EVENT DATE: 20181019
